FAERS Safety Report 7590771-8 (Version None)
Quarter: 2011Q3

REPORT INFORMATION
  Report Type: 
  Country: None (occurrence: None)
  Receive Date: 20110705
  Receipt Date: 20110622
  Transmission Date: 20111222
  Serious: Yes (Hospitalization)
  Sender: FDA-Public Use
  Company Number: PHHY2011AU17453

PATIENT
  Sex: Female
  Weight: 80 kg

DRUGS (3)
  1. CLOZAPINE [Suspect]
     Indication: SCHIZOPHRENIA
     Dosage: 200 MG, DAILY
     Dates: start: 20110131, end: 20110223
  2. QUETIAPINE [Concomitant]
     Indication: SCHIZOPHRENIA
     Dosage: 400 MG, DAILY
  3. ZUCLOPENTHIXOL [Concomitant]
     Indication: SCHIZOPHRENIA
     Dosage: 225 MG, FORTNIGHTLY

REACTIONS (3)
  - CONFUSIONAL STATE [None]
  - MYOCARDITIS [None]
  - TROPONIN INCREASED [None]
